FAERS Safety Report 14970558 (Version 3)
Quarter: 2019Q2

REPORT INFORMATION
  Report Type: Spontaneous
  Country: CA (occurrence: CA)
  Receive Date: 20180604
  Receipt Date: 20190510
  Transmission Date: 20190711
  Serious: Yes (Hospitalization, Other)
  Sender: FDA-Public Use
  Company Number: CA-PFIZER INC-2018211009

PATIENT
  Sex: Female

DRUGS (2)
  1. DEPO-MEDROL [Suspect]
     Active Substance: METHYLPREDNISOLONE ACETATE
     Indication: CYST
     Dosage: INJECTION 3 TIMES IN LUNGS AND KIDNEYS
  2. DEPO-MEDROL [Suspect]
     Active Substance: METHYLPREDNISOLONE ACETATE
     Dosage: EVERY 2 WEEKS
     Dates: end: 201902

REACTIONS (18)
  - Blindness [Recovered/Resolved]
  - Chest discomfort [Unknown]
  - Vision blurred [Not Recovered/Not Resolved]
  - Ocular hyperaemia [Unknown]
  - Eye pain [Unknown]
  - Hypersensitivity [Unknown]
  - Dyspnoea [Unknown]
  - Dysstasia [Unknown]
  - Decreased appetite [Unknown]
  - Eye disorder [Unknown]
  - Product use issue [Unknown]
  - Nerve injury [Unknown]
  - Renal impairment [Unknown]
  - Fatigue [Unknown]
  - Spinal disorder [Unknown]
  - Headache [Unknown]
  - Migraine [Not Recovered/Not Resolved]
  - Fall [Unknown]
